FAERS Safety Report 5745120-4 (Version None)
Quarter: 2008Q2

REPORT INFORMATION
  Report Type: 
  Country: None (occurrence: None)
  Receive Date: 20080521
  Receipt Date: 20080512
  Transmission Date: 20081010
  Serious: Yes (Other)
  Sender: FDA-Public Use
  Company Number: PHEH2008US04536

PATIENT

DRUGS (1)
  1. ZOMETA [Suspect]

REACTIONS (2)
  - JAW FRACTURE [None]
  - OSTEONECROSIS [None]
